FAERS Safety Report 14245572 (Version 2)
Quarter: 2017Q4

REPORT INFORMATION
  Report Type: Spontaneous
  Country: GB (occurrence: GB)
  Receive Date: 20171203
  Receipt Date: 20171203
  Transmission Date: 20180321
  Serious: Yes (Other)
  Sender: FDA-Public Use
  Company Number: GB-BAXTER-2017BAX039836

PATIENT
  Sex: Male

DRUGS (1)
  1. SODIUM CHLORIDE INTRAVENOUS INFUSION BP 0.9% W/V [Suspect]
     Active Substance: SODIUM CHLORIDE
     Indication: HAEMODIALYSIS
     Route: 010

REACTIONS (6)
  - Haemorrhage [Unknown]
  - Haemorrhage [Unknown]
  - Device kink [Unknown]
  - Haemorrhage [Unknown]
  - Device kink [Unknown]
  - Device kink [Unknown]

NARRATIVE: CASE EVENT DATE: 201608
